FAERS Safety Report 4466290-4 (Version None)
Quarter: 2004Q4

REPORT INFORMATION
  Report Type: 
  Country: None (occurrence: None)
  Receive Date: 20041005
  Receipt Date: 20040924
  Transmission Date: 20050328
  Serious: Yes (Hospitalization)
  Sender: FDA-Public Use
  Company Number: PHBS2004CH12836

PATIENT
  Age: 78 Year
  Sex: Female

DRUGS (5)
  1. LOGROTON [Suspect]
  2. ARICEPT [Concomitant]
  3. ASPIRIN [Concomitant]
  4. HALCION [Concomitant]
  5. XANAX [Concomitant]

REACTIONS (7)
  - CARDIOMEGALY [None]
  - CEREBRAL ISCHAEMIA [None]
  - CONFUSIONAL STATE [None]
  - DELIRIUM [None]
  - ELECTROCARDIOGRAM T WAVE INVERSION [None]
  - SINUS BRADYCARDIA [None]
  - VENTRICULAR HYPERTROPHY [None]
